FAERS Safety Report 16172583 (Version 1)
Quarter: 2019Q2

REPORT INFORMATION
  Report Type: Spontaneous
  Country: ID (occurrence: ID)
  Receive Date: 20190409
  Receipt Date: 20190409
  Transmission Date: 20190711
  Serious: Yes (Death)
  Sender: FDA-Public Use
  Company Number: ID-SA-2019SA095301

PATIENT
  Age: 57 Year
  Sex: Male

DRUGS (1)
  1. LOVENOX [Suspect]
     Active Substance: ENOXAPARIN SODIUM
     Indication: ANTICOAGULANT THERAPY
     Dosage: 60 MG/0.6ML/TWICE A DAY
     Route: 058
     Dates: start: 2019, end: 2019

REACTIONS (4)
  - Melaena [Fatal]
  - Epistaxis [Fatal]
  - Haematemesis [Fatal]
  - Haematuria [Fatal]

NARRATIVE: CASE EVENT DATE: 2019
